FAERS Safety Report 12429908 (Version 1)
Quarter: 2016Q2

REPORT INFORMATION
  Report Type: Spontaneous
  Country: US (occurrence: US)
  Receive Date: 20160602
  Receipt Date: 20160602
  Transmission Date: 20160815
  Serious: No
  Sender: FDA-Public Use
  Company Number: US-KADMON PHARMACEUTICALS, LLC-KAD201503-000512

PATIENT
  Sex: Female

DRUGS (2)
  1. RIBAVIRIN. [Suspect]
     Active Substance: RIBAVIRIN
  2. FISH OIL [Concomitant]
     Active Substance: FISH OIL
     Dosage: TABLET

REACTIONS (3)
  - Infection [Unknown]
  - Environmental exposure [Unknown]
  - Cystitis [Unknown]
